FAERS Safety Report 9719634 (Version 1)
Quarter: 2013Q4

REPORT INFORMATION
  Report Type: Spontaneous
  Country: US (occurrence: US)
  Receive Date: 20131128
  Receipt Date: 20131128
  Transmission Date: 20140711
  Serious: No
  Sender: FDA-Public Use
  Company Number: US-B.I. PHARMACEUTICALS,INC./RIDGEFIELD-2013-BI-37981BP

PATIENT
  Sex: Female
  Weight: 65 kg

DRUGS (4)
  1. COMBIVENT [Suspect]
     Indication: PULMONARY ARTERIAL HYPERTENSION
     Dosage: STRENGTH: 18 MCG / 103 MCG; DAILY DOSE: 144MCG/824MCG
     Route: 055
     Dates: start: 2007
  2. COMBIVENT [Suspect]
     Indication: PULMONARY FIBROSIS
  3. PREDNISONE [Concomitant]
     Dosage: 10 MG
     Route: 048
  4. TRACLEER [Concomitant]
     Indication: PULMONARY ARTERIAL HYPERTENSION
     Dosage: 250 MG
     Route: 048

REACTIONS (2)
  - Off label use [Unknown]
  - Off label use [Unknown]
